FAERS Safety Report 15736950 (Version 5)
Quarter: 2020Q1

REPORT INFORMATION
  Report Type: Spontaneous
  Country: US (occurrence: US)
  Receive Date: 20181218
  Receipt Date: 20200320
  Transmission Date: 20200409
  Serious: Yes (Hospitalization)
  Sender: FDA-Public Use
  Company Number: US-ACTELION-A-NJ2015-128259

PATIENT
  Age: 59 Year
  Sex: Female

DRUGS (2)
  1. OPSUMIT [Suspect]
     Active Substance: MACITENTAN
     Dosage: UNK
     Route: 048
     Dates: end: 20200101
  2. OPSUMIT [Suspect]
     Active Substance: MACITENTAN
     Indication: PULMONARY ARTERIAL HYPERTENSION
     Dosage: 10 MG, QD
     Route: 048
     Dates: start: 20151007, end: 20181210

REACTIONS (5)
  - Device issue [Unknown]
  - Product dose omission [Unknown]
  - Influenza like illness [Unknown]
  - Nasal congestion [Recovered/Resolved with Sequelae]
  - Sinusitis [Unknown]

NARRATIVE: CASE EVENT DATE: 20181115
